FAERS Safety Report 26089536 (Version 1)
Quarter: 2025Q4

REPORT INFORMATION
  Report Type: Report from Study
  Country: ZA (occurrence: None)
  Receive Date: 20251125
  Receipt Date: 20251125
  Transmission Date: 20260118
  Serious: Yes (Other)
  Sender: AMERICAN REGENT
  Company Number: ZA-AMERICAN REGENT INC-2025004133

PATIENT
  Age: 19 Year
  Sex: Female

DRUGS (2)
  1. FERINJECT [Suspect]
     Active Substance: FERRIC CARBOXYMALTOSE
     Indication: Iron deficiency anaemia
     Dosage: UNK, TOT
     Dates: start: 20250111, end: 20250111
  2. ASCORBIC ACID\FERRIC PYROPHOSPHATE [Concomitant]
     Active Substance: ASCORBIC ACID\FERRIC PYROPHOSPHATE
     Indication: Product used for unknown indication
     Dosage: UNK
     Route: 065

REACTIONS (17)
  - C-reactive protein increased [Unknown]
  - C-reactive protein increased [Unknown]
  - C-reactive protein increased [Unknown]
  - C-reactive protein increased [Unknown]
  - Neutrophil count increased [Unknown]
  - Monocyte count decreased [Unknown]
  - Immature granulocyte percentage increased [Unknown]
  - Transferrin decreased [Unknown]
  - Transferrin decreased [Unknown]
  - Lymphocyte count decreased [Unknown]
  - Serum ferritin decreased [Unknown]
  - Platelet count increased [Unknown]
  - Blood iron decreased [Unknown]
  - Transferrin saturation decreased [Unknown]
  - Blood iron decreased [Unknown]
  - Serum ferritin decreased [Unknown]
  - Transferrin saturation decreased [Unknown]

NARRATIVE: CASE EVENT DATE: 20250218
